FAERS Safety Report 8578768-2 (Version None)
Quarter: 2012Q3

REPORT INFORMATION
  Report Type: 
  Country: None (occurrence: None)
  Receive Date: 20120808
  Receipt Date: 20120731
  Transmission Date: 20120928
  Serious: Yes (Hospitalization, Other)
  Sender: FDA-Public Use
  Company Number: GB-B.I. PHARMACEUTICALS,INC./RIDGEFIELD-2012-UK-01013UK

PATIENT
  Age: 76 Year
  Sex: Male

DRUGS (2)
  1. UNSPECIFIED MEDICATIONS [Concomitant]
  2. PRADAXA [Suspect]
     Indication: CEREBROVASCULAR ACCIDENT PROPHYLAXIS
     Dosage: 150 MG

REACTIONS (1)
  - MYOCARDIAL INFARCTION [None]
